FAERS Safety Report 23094794 (Version 4)
Quarter: 2023Q4

REPORT INFORMATION
  Report Type: Report from Study
  Country: US (occurrence: US)
  Receive Date: 20231023
  Receipt Date: 20231208
  Transmission Date: 20240109
  Serious: No
  Sender: FDA-Public Use
  Company Number: US-GSK-US2023AMR145559

PATIENT
  Sex: Female
  Weight: 90.9 kg

DRUGS (9)
  1. FLOLAN [Suspect]
     Active Substance: EPOPROSTENOL SODIUM
     Indication: Pulmonary arterial hypertension
     Dosage: 15 NG/KG, CO
     Dates: start: 19991101
  2. GLYCINE\MANNITOL\SODIUM CHLORIDE [Suspect]
     Active Substance: GLYCINE\MANNITOL\SODIUM CHLORIDE
     Indication: Vehicle solution use
     Dosage: UNK
  3. ADCIRCA [Suspect]
     Active Substance: TADALAFIL
     Indication: Product used for unknown indication
     Dosage: UNK
  4. UPTRAVI [Suspect]
     Active Substance: SELEXIPAG
     Indication: Pulmonary hypertension
     Dosage: 400 UG; 1 TIME EVERY 5 DAYS
     Route: 048
  5. UPTRAVI [Suspect]
     Active Substance: SELEXIPAG
     Dosage: 600 UG; 1 TIME EVERY 5 DAYS
     Route: 048
  6. UPTRAVI [Suspect]
     Active Substance: SELEXIPAG
     Dosage: 1000 UG; 1 TIME EVERY 5 DAYS
     Route: 048
  7. UPTRAVI [Suspect]
     Active Substance: SELEXIPAG
     Dosage: 1200 UG; 1 TIME EVERY 5 DAYS
     Route: 048
  8. UPTRAVI [Suspect]
     Active Substance: SELEXIPAG
     Dosage: 1600 UG; 1 TIME EVERY 5 DAYS
     Route: 048
  9. LETAIRIS [Concomitant]
     Active Substance: AMBRISENTAN
     Indication: Product used for unknown indication
     Dosage: UNK

REACTIONS (15)
  - Dizziness [Unknown]
  - Fatigue [Recovered/Resolved]
  - Malaise [Unknown]
  - Diarrhoea [Unknown]
  - Flushing [Unknown]
  - Rash [Unknown]
  - Rosacea [Unknown]
  - Pain [Unknown]
  - Myalgia [Unknown]
  - Anxiety [Unknown]
  - Pain in jaw [Unknown]
  - Headache [Unknown]
  - Nasal congestion [Unknown]
  - Nervousness [Unknown]
  - Dyspepsia [Unknown]
